FAERS Safety Report 9239508 (Version 2)
Quarter: 2013Q2

REPORT INFORMATION
  Report Type: Spontaneous
  Country: US (occurrence: US)
  Receive Date: 20130418
  Receipt Date: 20130502
  Transmission Date: 20140414
  Serious: Yes (Hospitalization, Other)
  Sender: FDA-Public Use
  Company Number: US-TEVA-398909USA

PATIENT
  Age: 39 Year
  Sex: Female

DRUGS (5)
  1. CLOPIDOGREL [Suspect]
     Dosage: 75 MG/DAY
     Route: 065
  2. HYDROCHLOROTHIAZIDE [Concomitant]
     Route: 065
  3. SIMVASTATIN [Concomitant]
     Dosage: 20MG
     Route: 065
  4. FAMOTIDINE [Concomitant]
     Route: 065
  5. ASPIRIN [Concomitant]
     Route: 065

REACTIONS (4)
  - Hepatotoxicity [Recovering/Resolving]
  - Cholestasis [Recovering/Resolving]
  - Hepatic steatosis [Recovering/Resolving]
  - Hepatitis [Recovering/Resolving]
